FAERS Safety Report 14281771 (Version 2)
Quarter: 2018Q1

REPORT INFORMATION
  Report Type: Spontaneous
  Country: US (occurrence: US)
  Receive Date: 20171213
  Receipt Date: 20180209
  Transmission Date: 20180508
  Serious: Yes (Hospitalization)
  Sender: FDA-Public Use
  Company Number: US-PFIZER INC-2017526854

PATIENT
  Age: 85 Year
  Sex: Female
  Weight: 64.41 kg

DRUGS (2)
  1. DILAUDID [Suspect]
     Active Substance: HYDROMORPHONE HYDROCHLORIDE
     Dosage: UNK
     Dates: start: 201707, end: 201711
  2. GABAPENTIN. [Suspect]
     Active Substance: GABAPENTIN
     Indication: SCIATICA
     Dosage: 200 MG, 3X/DAY
     Route: 048
     Dates: start: 201707, end: 201711

REACTIONS (4)
  - Condition aggravated [Unknown]
  - Sciatica [Unknown]
  - Product use in unapproved indication [Unknown]
  - Scoliosis [Unknown]

NARRATIVE: CASE EVENT DATE: 201707
